FAERS Safety Report 11826948 (Version 3)
Quarter: 2016Q4

REPORT INFORMATION
  Report Type: Spontaneous
  Country: PE (occurrence: PE)
  Receive Date: 20151211
  Receipt Date: 20161007
  Transmission Date: 20170206
  Serious: Yes (Hospitalization, Other)
  Sender: FDA-Public Use
  Company Number: PE-009507513-1512PER006122

PATIENT
  Age: 59 Year
  Sex: Female

DRUGS (7)
  1. ATENOLOL. [Concomitant]
     Active Substance: ATENOLOL
     Indication: HYPERTENSION
     Dosage: UNK
  2. JANUMET [Suspect]
     Active Substance: METFORMIN HYDROCHLORIDE\SITAGLIPTIN PHOSPHATE
     Dosage: HALF TABLET IN THE MORNING AND ONE TABLET AT NIGHT
     Route: 048
     Dates: start: 201606, end: 2016
  3. JANUMET [Suspect]
     Active Substance: METFORMIN HYDROCHLORIDE\SITAGLIPTIN PHOSPHATE
     Dosage: 1 TABLET 50/500, BID (100/1000 DAILY)
     Route: 048
     Dates: end: 201604
  4. JANUMET [Suspect]
     Active Substance: METFORMIN HYDROCHLORIDE\SITAGLIPTIN PHOSPHATE
     Indication: TYPE 2 DIABETES MELLITUS
     Dosage: 1 DF, UNK
     Route: 048
     Dates: start: 201604, end: 20160504
  5. JANUMET [Suspect]
     Active Substance: METFORMIN HYDROCHLORIDE\SITAGLIPTIN PHOSPHATE
     Indication: TYPE 2 DIABETES MELLITUS
     Dosage: 50/500MG, BID (ONE TABLET WITH BREAKFAST AND ANOTHER TABLET WITH DINNER)
     Route: 048
     Dates: start: 20151120, end: 20151207
  6. LEVEMIR [Concomitant]
     Active Substance: INSULIN DETEMIR
     Indication: TYPE 2 DIABETES MELLITUS
     Dosage: 100UI/ML, BID
     Dates: start: 2013
  7. JANUMET [Suspect]
     Active Substance: METFORMIN HYDROCHLORIDE\SITAGLIPTIN PHOSPHATE
     Dosage: ONCE OR TWICE PER WEEK
     Route: 048
     Dates: start: 2016

REACTIONS (12)
  - Dyspepsia [Unknown]
  - Wrong technique in product usage process [Unknown]
  - Vocal cord disorder [Unknown]
  - Asthenia [Unknown]
  - Drug dose omission [Unknown]
  - Drug prescribing error [Unknown]
  - Tracheal obstruction [Unknown]
  - Escherichia urinary tract infection [Unknown]
  - Abdominal distension [Unknown]
  - Inappropriate schedule of drug administration [Unknown]
  - Blood glucose increased [Recovered/Resolved]
  - Pharyngitis [Recovered/Resolved]

NARRATIVE: CASE EVENT DATE: 201512
